FAERS Safety Report 23299735 (Version 1)
Quarter: 2023Q4

REPORT INFORMATION
  Report Type: Spontaneous
  Country: US (occurrence: US)
  Receive Date: 20231215
  Receipt Date: 20231215
  Transmission Date: 20240109
  Serious: Yes (Other)
  Sender: FDA-Public Use
  Company Number: US-002147023-NVSC2023US262961

PATIENT
  Age: 53 Year
  Sex: Male
  Weight: 82.09 kg

DRUGS (2)
  1. ZOMETA [Suspect]
     Active Substance: ZOLEDRONIC ACID
     Indication: Product used for unknown indication
     Route: 065
  2. CABOMETYX [Suspect]
     Active Substance: CABOZANTINIB S-MALATE
     Indication: Renal cancer
     Dosage: 40 MG, QD
     Route: 048
     Dates: start: 20230718

REACTIONS (5)
  - Bone cancer [Unknown]
  - Adverse drug reaction [Unknown]
  - Dry skin [Unknown]
  - Cancer pain [Unknown]
  - Blood pressure increased [Unknown]
